FAERS Safety Report 8012486-4 (Version None)
Quarter: 2011Q4

REPORT INFORMATION
  Report Type: 
  Country: None (occurrence: None)
  Receive Date: 20111229
  Receipt Date: 20111221
  Transmission Date: 20120403
  Serious: Yes (Hospitalization)
  Sender: FDA-Public Use
  Company Number: BE-ROCHE-1006417

PATIENT
  Sex: Female
  Weight: 66.5 kg

DRUGS (11)
  1. STEROID (UNK INGREDIENTS) [Concomitant]
  2. PREDNISOLONE [Concomitant]
  3. NOLVADEX [Concomitant]
  4. METFORMIN HCL [Concomitant]
  5. BISOPROLOL FUMARATE [Concomitant]
  6. MYCOPHENOLATE MOFETIL (CELLCEPT) [Suspect]
     Indication: VASCULITIS
     Dates: start: 20110615, end: 20111025
  7. PANTOMED (BELGIUM) [Concomitant]
  8. AZA [Concomitant]
     Dates: start: 20111025
  9. EUSAPRIM [Concomitant]
  10. MOTILIUM (BELGIUM) [Concomitant]
  11. PRAREDUCT [Concomitant]

REACTIONS (2)
  - OESOPHAGEAL CANDIDIASIS [None]
  - WEGENER'S GRANULOMATOSIS [None]
